FAERS Safety Report 26088769 (Version 2)
Quarter: 2025Q4

REPORT INFORMATION
  Report Type: Report from Study
  Country: US (occurrence: US)
  Receive Date: 20251125
  Receipt Date: 20251202
  Transmission Date: 20260118
  Serious: Yes (Other)
  Sender: RHYTHM PHARMACEUTICALS
  Company Number: US-RHYTHM PHARMACEUTICALS, INC.-2025RHM000722

PATIENT

DRUGS (36)
  1. SETMELANOTIDE [Suspect]
     Active Substance: SETMELANOTIDE
     Indication: Laurence-Moon-Bardet-Biedl syndrome
     Dosage: 0.5 MILLIGRAM, QD
     Route: 058
     Dates: start: 20251029, end: 20251107
  2. MIDODRINE [Suspect]
     Active Substance: MIDODRINE
     Indication: Product used for unknown indication
  3. ACETAMINOPHEN [Concomitant]
     Active Substance: ACETAMINOPHEN
     Indication: Product used for unknown indication
     Dosage: UNK
  4. ATORVASTATIN [Concomitant]
     Active Substance: ATORVASTATIN
     Indication: Product used for unknown indication
     Dosage: UNK
  5. AURYXIA [Concomitant]
     Active Substance: TETRAFERRIC TRICITRATE DECAHYDRATE
     Indication: Product used for unknown indication
     Dosage: UNK
  6. Balsam Peru + Castor oil [Concomitant]
     Indication: Product used for unknown indication
     Dosage: UNK
  7. CORTEF [Concomitant]
     Active Substance: HYDROCORTISONE
     Indication: Product used for unknown indication
     Dosage: UNK
  8. DILAUDID [Concomitant]
     Active Substance: HYDROMORPHONE HYDROCHLORIDE
     Indication: Product used for unknown indication
     Dosage: UNK
  9. ELIQUIS [Concomitant]
     Active Substance: APIXABAN
     Indication: Product used for unknown indication
     Dosage: UNK
  10. FLONASE ALLERGY RELIEF [Concomitant]
     Active Substance: FLUTICASONE PROPIONATE
     Indication: Product used for unknown indication
     Dosage: UNK
     Route: 045
  11. FOLIC ACID [Concomitant]
     Active Substance: FOLIC ACID
     Indication: Product used for unknown indication
     Dosage: UNK
  12. GLUCAGON [Concomitant]
     Active Substance: GLUCAGON
     Indication: Product used for unknown indication
     Dosage: UNK
  13. HYDROXYZINE [Concomitant]
     Active Substance: HYDROXYZINE HYDROCHLORIDE
     Indication: Product used for unknown indication
     Dosage: UNK
  14. IMPLANON [Concomitant]
     Active Substance: ETONOGESTREL
     Indication: Product used for unknown indication
     Dosage: UNK
  15. LACTOBACILLUS RHAMNOSUS [Concomitant]
     Active Substance: LACTOBACILLUS RHAMNOSUS
     Indication: Product used for unknown indication
     Dosage: UNK
  16. BIFIDOBACTERIUM BIFIDUM [Concomitant]
     Active Substance: BIFIDOBACTERIUM BIFIDUM
     Indication: Product used for unknown indication
     Dosage: UNK
  17. LIDOCAINE [Concomitant]
     Active Substance: LIDOCAINE
     Indication: Product used for unknown indication
     Dosage: UNK
  18. LUPRON DEPOT [Concomitant]
     Active Substance: LEUPROLIDE ACETATE
     Indication: Product used for unknown indication
     Dosage: UNK
  19. MIRALAX [Concomitant]
     Active Substance: POLYETHYLENE GLYCOL 3350
     Indication: Product used for unknown indication
     Dosage: UNK
  20. MOUNJARO [Concomitant]
     Active Substance: TIRZEPATIDE
     Indication: Product used for unknown indication
     Dosage: UNK
  21. NALOXONE [Concomitant]
     Active Substance: NALOXONE
     Indication: Product used for unknown indication
     Dosage: UNK
  22. NEXIUM [Concomitant]
     Active Substance: ESOMEPRAZOLE MAGNESIUM
     Indication: Product used for unknown indication
     Dosage: UNK
  23. NYSTATIN [Concomitant]
     Active Substance: NYSTATIN
     Indication: Product used for unknown indication
     Dosage: UNK
  24. OXYBUTYNIN [Concomitant]
     Active Substance: OXYBUTYNIN
     Indication: Product used for unknown indication
     Dosage: UNK
  25. PENTOXIFYLLINE [Concomitant]
     Active Substance: PENTOXIFYLLINE
     Indication: Product used for unknown indication
     Dosage: UNK
  26. PREGABALIN [Concomitant]
     Active Substance: PREGABALIN
     Indication: Product used for unknown indication
     Dosage: UNK
  27. PROMETHAZINE [Concomitant]
     Active Substance: PROMETHAZINE HYDROCHLORIDE
     Indication: Product used for unknown indication
     Dosage: UNK
  28. RESTASIS [Concomitant]
     Active Substance: CYCLOSPORINE
     Indication: Product used for unknown indication
     Dosage: UNK
     Route: 047
  29. SENNA [Concomitant]
     Active Substance: SENNOSIDES
     Indication: Product used for unknown indication
     Dosage: UNK
  30. SEVELAMER [Concomitant]
     Active Substance: SEVELAMER
     Indication: Product used for unknown indication
     Dosage: UNK
  31. SODIUM THIOSULFATE [Concomitant]
     Active Substance: SODIUM THIOSULFATE
     Indication: Product used for unknown indication
     Dosage: UNK
  32. TOBRADEX [Concomitant]
     Active Substance: DEXAMETHASONE\TOBRAMYCIN
     Indication: Product used for unknown indication
     Dosage: UNK
  33. VITAMIN B COMPLEX [Concomitant]
     Active Substance: CYANOCOBALAMIN\DEXPANTHENOL\NIACINAMIDE\PYRIDOXINE HYDROCHLORIDE\RIBOFLAVIN 5^-PHOSPHATE SODIUM\THIA
     Indication: Product used for unknown indication
     Dosage: UNK
  34. VITAMIN C [Concomitant]
     Active Substance: ASCORBIC ACID
     Indication: Product used for unknown indication
     Dosage: UNK
  35. ZINC ACETATE [Concomitant]
     Active Substance: ZINC ACETATE
     Indication: Product used for unknown indication
     Dosage: UNK
  36. ZOFRAN [Concomitant]
     Active Substance: ONDANSETRON HYDROCHLORIDE
     Indication: Product used for unknown indication
     Dosage: UNK

REACTIONS (8)
  - Blood potassium increased [Recovered/Resolved]
  - Somnolence [Recovered/Resolved]
  - Hyperhidrosis [Recovered/Resolved]
  - Feeling abnormal [Recovered/Resolved]
  - Drug interaction [Recovered/Resolved]
  - Blood pressure increased [Recovered/Resolved]
  - Skin discolouration [Unknown]
  - Product use issue [Not Recovered/Not Resolved]

NARRATIVE: CASE EVENT DATE: 20251103
